FAERS Safety Report 10173142 (Version 1)
Quarter: 2014Q2

REPORT INFORMATION
  Report Type: Spontaneous
  Country: US (occurrence: None)
  Receive Date: 20140425
  Receipt Date: 20140425
  Transmission Date: 20141212
  Serious: Yes (Other)
  Sender: FDA-Public Use
  Company Number: 1345144

PATIENT
  Age: 77 Year
  Sex: Male
  Weight: 70.31 kg

DRUGS (4)
  1. ZELBORAF [Suspect]
     Indication: MALIGNANT MELANOMA
     Dosage: 1920 MG (960 MG, 2 IN 1 D)
     Route: 048
     Dates: start: 20131217, end: 20140203
  2. ATENOLOL (ATENOLOL) [Concomitant]
  3. LISINOPRIL (LISINOPRIL) [Concomitant]
  4. PANTOPRAZOLE (PANTOPRAZOLE) [Concomitant]

REACTIONS (2)
  - Basal cell carcinoma [None]
  - Squamous cell carcinoma [None]
